FAERS Safety Report 6108912-8 (Version None)
Quarter: 2009Q1

REPORT INFORMATION
  Report Type: 
  Country: None (occurrence: None)
  Receive Date: 20090310
  Receipt Date: 20090223
  Transmission Date: 20090719
  Serious: Yes (Other)
  Sender: FDA-Public Use
  Company Number: US-BAYER-200913959NA

PATIENT
  Age: 73 Year
  Sex: Male

DRUGS (3)
  1. ULTRAVIST 370 [Suspect]
     Indication: COMPUTERISED TOMOGRAM ABDOMEN
     Dosage: TOTAL DAILY DOSE: 80 ML  UNIT DOSE: 500 ML
     Route: 042
     Dates: start: 20090223, end: 20090223
  2. ULTRAVIST 370 [Suspect]
     Route: 048
     Dates: start: 20090223, end: 20090223
  3. SODIUM CHLORIDE [Concomitant]
     Dosage: AS USED: 300 ML
     Dates: start: 20090223, end: 20090223

REACTIONS (2)
  - DYSPNOEA [None]
  - TREMOR [None]
